FAERS Safety Report 6264617-4 (Version None)
Quarter: 2009Q3

REPORT INFORMATION
  Report Type: 
  Country: None (occurrence: None)
  Receive Date: 20090710
  Receipt Date: 20090701
  Transmission Date: 20100115
  Serious: Yes (Hospitalization)
  Sender: FDA-Public Use
  Company Number: BE-BAXTER-2009BH011079

PATIENT
  Age: 33 Year
  Sex: Male
  Weight: 89 kg

DRUGS (8)
  1. DIANEAL [Suspect]
     Indication: PERITONEAL DIALYSIS
     Route: 033
     Dates: start: 20050711
  2. EXTRANEAL [Suspect]
     Indication: PERITONEAL DIALYSIS
     Route: 033
     Dates: start: 20050711
  3. NEORECORMON ^BOEHRINGER MANNHEIM^ [Concomitant]
     Indication: ANAEMIA
     Route: 058
     Dates: start: 20071022
  4. FRAXIPARINE                             /FRA/ [Concomitant]
     Indication: ANTICOAGULANT THERAPY
     Route: 058
     Dates: start: 20071023
  5. EMCONCOR                                /BEL/ [Concomitant]
     Indication: CARDIOVASCULAR EVENT PROPHYLAXIS
     Route: 048
     Dates: start: 19800101
  6. ZESTRIL [Concomitant]
     Indication: CARDIOVASCULAR EVENT PROPHYLAXIS
     Route: 048
     Dates: start: 19800101
  7. CALCIUM CARBONATE [Concomitant]
     Indication: RENAL OSTEODYSTROPHY
     Route: 048
     Dates: start: 20061114
  8. ALPHA ^LEO^ [Concomitant]
     Indication: RENAL OSTEODYSTROPHY
     Route: 065
     Dates: start: 20071020

REACTIONS (1)
  - SCLEROSING ENCAPSULATING PERITONITIS [None]
